FAERS Safety Report 9014567 (Version 1)
Quarter: 2013Q1

REPORT INFORMATION
  Report Type: Spontaneous
  Country: US (occurrence: US)
  Receive Date: 20130115
  Receipt Date: 20130115
  Transmission Date: 20140127
  Serious: No
  Sender: FDA-Public Use
  Company Number: US-NOVEN-12US005445

PATIENT
  Sex: Male

DRUGS (1)
  1. FENTANYL [Suspect]
     Indication: PAIN
     Dosage: 75 UG/HR
     Route: 062
     Dates: start: 201209

REACTIONS (2)
  - Application site pain [Not Recovered/Not Resolved]
  - Application site induration [Not Recovered/Not Resolved]
